FAERS Safety Report 5232350-3 (Version None)
Quarter: 2007Q1

REPORT INFORMATION
  Report Type: 
  Country: None (occurrence: None)
  Receive Date: 20070205
  Receipt Date: 20070122
  Transmission Date: 20070707
  Serious: Yes (Life-Threatening)
  Sender: FDA-Public Use
  Company Number: S01-SWI-01059-01

PATIENT
  Age: 79 Year
  Sex: Male

DRUGS (5)
  1. CITALOPRAM HYDROBROMIDE [Suspect]
     Indication: DEPRESSION
     Dosage: 20 MG QD PO
     Route: 048
     Dates: start: 20010228, end: 20010404
  2. ARICEPT [Suspect]
     Indication: DEMENTIA ALZHEIMER'S TYPE
     Dosage: 5 MG QD PO
     Route: 048
     Dates: start: 19990101, end: 20010330
  3. IMOVANE (ZOPICLONE) [Concomitant]
  4. RISPERDAL [Concomitant]
  5. ZOLPIDEM TARTRATE [Concomitant]

REACTIONS (8)
  - BLOOD DISORDER [None]
  - CELL DEATH [None]
  - CHOLESTASIS [None]
  - COAGULATION TIME PROLONGED [None]
  - INSOMNIA [None]
  - INTERNATIONAL NORMALISED RATIO INCREASED [None]
  - LIVER INJURY [None]
  - PROTHROMBIN TIME PROLONGED [None]
